FAERS Safety Report 5794097-4 (Version None)
Quarter: 2008Q2

REPORT INFORMATION
  Report Type: 
  Country: None (occurrence: None)
  Receive Date: 20080627
  Receipt Date: 20080619
  Transmission Date: 20081010
  Serious: Yes (Other)
  Sender: FDA-Public Use
  Company Number: JP-PFIZER INC-2008048983

PATIENT
  Age: 74 Year
  Sex: Male

DRUGS (2)
  1. AMLODIPINE [Suspect]
     Indication: HYPERTENSION
  2. NAFTOPIDIL [Concomitant]
     Indication: HYPERTENSION
     Dosage: DAILY DOSE:5MG

REACTIONS (1)
  - PSEUDOLYMPHOMA [None]
